FAERS Safety Report 6639479-3 (Version None)
Quarter: 2010Q1

REPORT INFORMATION
  Report Type: 
  Country: None (occurrence: None)
  Receive Date: 20100318
  Receipt Date: 20100302
  Transmission Date: 20100710
  Serious: Yes (Other)
  Sender: FDA-Public Use
  Company Number: NZ-JNJFOC-20091100235

PATIENT
  Age: 13 Year
  Sex: Male

DRUGS (2)
  1. CONCERTA [Suspect]
     Indication: DRUG USE FOR UNKNOWN INDICATION
     Route: 048
  2. CONCERTA [Suspect]
     Route: 048

REACTIONS (5)
  - ABNORMAL BEHAVIOUR [None]
  - HYPERVENTILATION [None]
  - MEMORY IMPAIRMENT [None]
  - PETIT MAL EPILEPSY [None]
  - TREMOR [None]
